FAERS Safety Report 4898993-1 (Version None)
Quarter: 2006Q1

REPORT INFORMATION
  Report Type: 
  Country: None (occurrence: None)
  Receive Date: 20060202
  Receipt Date: 20060109
  Transmission Date: 20060701
  Serious: Yes (Hospitalization)
  Sender: FDA-Public Use
  Company Number: US-MERCK-0601USA01033

PATIENT
  Age: 36 Year
  Sex: Male
  Weight: 86 kg

DRUGS (7)
  1. VIOXX [Suspect]
     Indication: JOINT SWELLING
     Route: 048
     Dates: start: 20020801, end: 20040930
  2. DURAGESIC-100 [Concomitant]
     Route: 065
  3. EFFEXOR [Concomitant]
     Route: 065
  4. NEURONTIN [Concomitant]
     Route: 065
  5. OXYCODONE [Concomitant]
     Route: 065
  6. PERCOCET [Concomitant]
     Route: 065
  7. ZOLOFT [Concomitant]
     Route: 065

REACTIONS (1)
  - CEREBROVASCULAR ACCIDENT [None]
